FAERS Safety Report 14435007 (Version 5)
Quarter: 2020Q2

REPORT INFORMATION
  Report Type: Spontaneous
  Country: CA (occurrence: CA)
  Receive Date: 20180125
  Receipt Date: 20200608
  Transmission Date: 20200713
  Serious: Yes (Hospitalization)
  Sender: FDA-Public Use
  Company Number: CA-ROCHE-2061105

PATIENT
  Age: 48 Year
  Sex: Female
  Weight: 106 kg

DRUGS (52)
  1. PEGFILGRASTIM [Suspect]
     Active Substance: PEGFILGRASTIM
     Dosage: DURATION 1 DAY?REGIMEN #2
     Route: 058
  2. APREPITANT. [Suspect]
     Active Substance: APREPITANT
     Indication: SUPPORTIVE CARE
     Dosage: REGIMEN #1?DURATION 2 DAYS
     Route: 048
  3. APREPITANT. [Suspect]
     Active Substance: APREPITANT
     Dosage: REGIMEN #6?DURATION 2 DAYS
     Route: 048
  4. APREPITANT. [Suspect]
     Active Substance: APREPITANT
     Dosage: REGIMEN #7?DURATION 2 DAYS
     Route: 048
  5. APREPITANT. [Suspect]
     Active Substance: APREPITANT
     Dosage: REGIMEN #9?DURATION 1 DAYS
     Route: 048
  6. DEXAMETHASONE. [Suspect]
     Active Substance: DEXAMETHASONE
     Indication: SUPPORTIVE CARE
     Dosage: DURATION 2 DAYS?REGIMEN #1
     Route: 048
  7. ONDANSETRON [Suspect]
     Active Substance: ONDANSETRON
     Dosage: DURATION 1 DAY?REGIMEN #4
     Route: 048
  8. ONDANSETRON [Suspect]
     Active Substance: ONDANSETRON
     Dosage: DURATION 1 DAY?REGIMEN #6
     Route: 048
  9. PACLITAXEL. [Suspect]
     Active Substance: PACLITAXEL
     Indication: BREAST CANCER
     Dosage: REGIMEN #1, 15 DAYS
     Route: 042
  10. PROCYTOX [Suspect]
     Active Substance: CYCLOPHOSPHAMIDE
     Indication: BREAST CANCER
     Dosage: REGIMEN #1?POWDER FOR SOLUTION FOR INJECTION OR INFUSION, 2000 MG?DURATION 57 DAYS
     Route: 042
  11. EMEND [Suspect]
     Active Substance: APREPITANT
     Route: 048
  12. PEGFILGRASTIM [Suspect]
     Active Substance: PEGFILGRASTIM
     Dosage: DURATION 1 DAY?REGIMEN #3
     Route: 058
  13. FILGRASTIM [Suspect]
     Active Substance: FILGRASTIM
     Indication: SUPPORTIVE CARE
     Dosage: 480 MUG, 1 DAY?REGIMEN #1
     Route: 065
  14. PEGFILGRASTIM [Suspect]
     Active Substance: PEGFILGRASTIM
     Indication: SUPPORTIVE CARE
     Dosage: DURATION 1 DAY?REGIMEN #1
     Route: 058
  15. TRASTUZUMAB. [Suspect]
     Active Substance: TRASTUZUMAB
     Indication: TARDIVE DYSKINESIA
     Dosage: REGIMEN #1 ?DURATION 1 DAY
     Route: 065
  16. APREPITANT. [Suspect]
     Active Substance: APREPITANT
     Dosage: REGIMEN #10?DURATION 2 DAYS
     Route: 048
  17. DEXAMETHASONE. [Suspect]
     Active Substance: DEXAMETHASONE
     Dosage: DURATION 2 DAYS?REGIMEN #2
     Route: 048
  18. DOXORUBICIN [Suspect]
     Active Substance: DOXORUBICIN
     Indication: BREAST CANCER
     Dosage: REGIMEN #1?DURATION 43 DAYS
     Route: 042
  19. DOXORUBICIN [Suspect]
     Active Substance: DOXORUBICIN
     Route: 042
  20. LEVOFLOXACIN. [Suspect]
     Active Substance: LEVOFLOXACIN
     Indication: TARDIVE DYSKINESIA
     Dosage: REGIMEN #1
     Route: 048
  21. ONDANSETRON [Suspect]
     Active Substance: ONDANSETRON
     Dosage: DURATION 1 DAY?REGIMEN #2
     Route: 048
  22. EMEND [Suspect]
     Active Substance: APREPITANT
     Indication: PRODUCT USED FOR UNKNOWN INDICATION
     Route: 048
  23. ACETAMINOPHEN;CODEINE PHOSPHATE [Suspect]
     Active Substance: ACETAMINOPHEN\CODEINE PHOSPHATE
     Indication: TARDIVE DYSKINESIA
     Route: 065
  24. PEGFILGRASTIM [Suspect]
     Active Substance: PEGFILGRASTIM
     Dosage: DURATION 1 DAY?REGIMEN #4
     Route: 058
  25. PEGFILGRASTIM [Suspect]
     Active Substance: PEGFILGRASTIM
     Dosage: DURATION 1 DAY?REGIMEN #5
     Route: 058
  26. APREPITANT. [Suspect]
     Active Substance: APREPITANT
     Dosage: REGIMEN #5?DURATION 2 DAY
     Route: 048
  27. APREPITANT. [Suspect]
     Active Substance: APREPITANT
     Dosage: REGIMEN #11?DURATION 2 DAYS
     Route: 048
  28. DEXAMETHASONE. [Suspect]
     Active Substance: DEXAMETHASONE
     Dosage: DURATION 2 DAYS?REGIMEN #3
     Route: 048
  29. METOCLOPRAMIDE. [Suspect]
     Active Substance: METOCLOPRAMIDE
     Indication: TARDIVE DYSKINESIA
     Dosage: REGIMEN #1
     Route: 048
  30. ONDANSETRON [Suspect]
     Active Substance: ONDANSETRON
     Dosage: DURATION 1 DAY?REGIMEN #5
     Route: 048
  31. PACLITAXEL. [Suspect]
     Active Substance: PACLITAXEL
     Dosage: REGIMEN #2, 1 DAY
     Route: 042
  32. PACLITAXEL. [Suspect]
     Active Substance: PACLITAXEL
     Dosage: REGIMEN #3
     Route: 042
  33. APREPITANT. [Suspect]
     Active Substance: APREPITANT
     Dosage: REGIMEN #4?DURATION 1 DAY
     Route: 048
  34. DEXAMETHASONE. [Suspect]
     Active Substance: DEXAMETHASONE
     Dosage: DURATION 2 DAYS?REGIMEN #4
     Route: 048
  35. ENOXAPARIN [Suspect]
     Active Substance: ENOXAPARIN
     Indication: TARDIVE DYSKINESIA
     Dosage: REGIMEN #1
     Route: 058
  36. LORAZEPAM. [Suspect]
     Active Substance: LORAZEPAM
     Indication: TARDIVE DYSKINESIA
     Dosage: REGIMEN #1
     Route: 048
  37. ONDANSETRON [Suspect]
     Active Substance: ONDANSETRON
     Dosage: DURATION 1 DAY?REGIMEN #3
     Route: 048
  38. ONDANSETRON [Suspect]
     Active Substance: ONDANSETRON
     Dosage: DURATION 1 DAY?REGIMEN #8
     Route: 048
  39. TYLENOL WITH CODEINE [Suspect]
     Active Substance: ACETAMINOPHEN\CODEINE PHOSPHATE
     Indication: TARDIVE DYSKINESIA
     Dosage: REGIMEN #1
     Route: 065
  40. FILGRASTIM [Suspect]
     Active Substance: FILGRASTIM
     Dosage: 480 MUG,?REGIMEN #2
     Route: 065
  41. TRASTUZUMAB. [Suspect]
     Active Substance: TRASTUZUMAB
     Dosage: REGIMEN #3?DURATION 1 DAY
     Route: 065
  42. TRASTUZUMAB. [Suspect]
     Active Substance: TRASTUZUMAB
     Dosage: REGIMEN #4?DURATION 1 DAY
     Route: 065
  43. APREPITANT. [Suspect]
     Active Substance: APREPITANT
     Dosage: REGIMEN #8?DURATION 2 DAYS
     Route: 048
  44. DOXORUBICIN [Suspect]
     Active Substance: DOXORUBICIN
     Route: 042
  45. ONDANSETRON [Suspect]
     Active Substance: ONDANSETRON
     Dosage: DURATION 1 DAY?REGIMEN #7
     Route: 048
  46. FILGRASTIM [Suspect]
     Active Substance: FILGRASTIM
     Dosage: 480 MUG?REGIMEN #3
     Route: 065
  47. TRASTUZUMAB. [Suspect]
     Active Substance: TRASTUZUMAB
     Dosage: REGIMEN #2?DURATION 1 DAY
     Route: 065
  48. APREPITANT. [Suspect]
     Active Substance: APREPITANT
     Dosage: REGIMEN #2?DURATION 1 DAY
     Route: 048
  49. BETAMETHASONE. [Suspect]
     Active Substance: BETAMETHASONE
     Indication: TARDIVE DYSKINESIA
     Dosage: REGIMEN #1
     Route: 065
  50. APREPITANT. [Suspect]
     Active Substance: APREPITANT
     Dosage: REGIMEN #3?DURATION 1 DAY
     Route: 048
  51. ONDANSETRON [Suspect]
     Active Substance: ONDANSETRON
     Indication: SUPPORTIVE CARE
     Dosage: DURATION 1 DAY?REGIMEN #1
     Route: 048
  52. RANITIDINE. [Suspect]
     Active Substance: RANITIDINE
     Indication: TARDIVE DYSKINESIA
     Dosage: REGIMEN #1
     Route: 048

REACTIONS (11)
  - Pyrexia [Recovered/Resolved]
  - Fatigue [Recovered/Resolved]
  - Dyspnoea [Recovered/Resolved]
  - Rash [Recovered/Resolved]
  - Cough [Recovered/Resolved]
  - Atelectasis [Recovered/Resolved]
  - Gastrointestinal disorder [Recovered/Resolved]
  - Nausea [Recovered/Resolved]
  - Hypoxia [Recovered/Resolved]
  - Off label use [Unknown]
  - Computerised tomogram thorax abnormal [Recovered/Resolved]
